FAERS Safety Report 18518006 (Version 1)
Quarter: 2020Q4

REPORT INFORMATION
  Report Type: Spontaneous
  Country: US (occurrence: US)
  Receive Date: 20201118
  Receipt Date: 20201118
  Transmission Date: 20210114
  Serious: No
  Sender: FDA-Public Use
  Company Number: US-ELI_LILLY_AND_COMPANY-US202011005107

PATIENT
  Sex: Female

DRUGS (4)
  1. HUMALOG [Suspect]
     Active Substance: INSULIN LISPRO
     Dosage: 16 U, DAILY (15-16 U)
     Route: 058
     Dates: start: 2013
  2. INSULIN  LISPRO [Suspect]
     Active Substance: INSULIN LISPRO
     Indication: TYPE 1 DIABETES MELLITUS
     Dosage: 16 U, DAILY (15-16 U)
     Route: 058
  3. HUMALOG [Suspect]
     Active Substance: INSULIN LISPRO
     Indication: TYPE 1 DIABETES MELLITUS
     Dosage: 16 U, DAILY (15-16 U)
     Route: 058
     Dates: start: 2013
  4. INSULIN  LISPRO [Suspect]
     Active Substance: INSULIN LISPRO
     Dosage: 16 U, DAILY (15-16 U)
     Route: 058

REACTIONS (4)
  - Drug ineffective [Unknown]
  - Therapeutic product effect delayed [Unknown]
  - Product dispensing error [Recovered/Resolved]
  - Blood glucose increased [Unknown]
